FAERS Safety Report 4832384-4 (Version None)
Quarter: 2005Q4

REPORT INFORMATION
  Report Type: 
  Country: None (occurrence: None)
  Receive Date: 20051117
  Receipt Date: 20051117
  Transmission Date: 20060501
  Serious: Yes (Life-Threatening)
  Sender: FDA-Public Use
  Company Number: None

PATIENT
  Sex: Male
  Weight: 82.1011 kg

DRUGS (2)
  1. ZYPREXA [Suspect]
     Indication: HERPES SIMPLEX
     Dosage: 10 MG 1 TIME PER DAY PO
     Route: 048
     Dates: start: 20020226, end: 20020719
  2. ZYPREXA [Suspect]
     Dosage: 20 MG 1 TIME PER DAY PO
     Route: 048

REACTIONS (1)
  - DIABETES MELLITUS NON-INSULIN-DEPENDENT [None]
